FAERS Safety Report 9817301 (Version 1)
Quarter: 2014Q1

REPORT INFORMATION
  Report Type: Spontaneous
  Country: US (occurrence: US)
  Receive Date: 20140115
  Receipt Date: 20140115
  Transmission Date: 20141002
  Serious: No
  Sender: FDA-Public Use
  Company Number: US-009507513-1401USA005723

PATIENT
  Age: 68 Year
  Sex: Male

DRUGS (1)
  1. AFRIN [Suspect]

REACTIONS (1)
  - Drug ineffective [Unknown]
